FAERS Safety Report 17426873 (Version 4)
Quarter: 2020Q2

REPORT INFORMATION
  Report Type: Spontaneous
  Country: US (occurrence: US)
  Receive Date: 20200218
  Receipt Date: 20200423
  Transmission Date: 20200713
  Serious: No
  Sender: FDA-Public Use
  Company Number: US-GLAXOSMITHKLINE-US2020023488

PATIENT
  Sex: Male

DRUGS (1)
  1. NUCALA [Suspect]
     Active Substance: MEPOLIZUMAB
     Indication: PRODUCT USED FOR UNKNOWN INDICATION
     Dosage: 100 MG/ML
     Route: 058

REACTIONS (4)
  - Wrong technique in device usage process [Recovered/Resolved]
  - Accidental underdose [Not Recovered/Not Resolved]
  - Accidental exposure to product [Recovered/Resolved]
  - Product complaint [Unknown]
